FAERS Safety Report 14099912 (Version 1)
Quarter: 2017Q4

REPORT INFORMATION
  Report Type: Spontaneous
  Country: FR (occurrence: FR)
  Receive Date: 20171017
  Receipt Date: 20171017
  Transmission Date: 20180321
  Serious: Yes (Hospitalization, Other)
  Sender: FDA-Public Use
  Company Number: FR-PFIZER INC-2017446541

PATIENT
  Age: 28 Year
  Sex: Female

DRUGS (4)
  1. IMETH [Suspect]
     Active Substance: METHOTREXATE SODIUM
     Dosage: 15 MG, WEEKLY (2.1429 MG (15 MG,1 IN 1 W))
     Dates: start: 2014
  2. IMETH [Suspect]
     Active Substance: METHOTREXATE SODIUM
     Dosage: 20 MG, WEEKLY (2.8571 MG (20 MG,1 IN 1 W))
  3. IMETH [Suspect]
     Active Substance: METHOTREXATE SODIUM
     Dosage: 15 MG, WEEKLY (2.1429 MG (15 MG,1 IN 1 W))
     Dates: start: 2016
  4. IMETH [Suspect]
     Active Substance: METHOTREXATE SODIUM
     Indication: RHEUMATOID ARTHRITIS
     Dosage: 10 MG, WEEKLY (1.4286 MG (10 MG,1 IN 1 W))
     Dates: start: 2010

REACTIONS (3)
  - Appendicitis [Recovered/Resolved]
  - Peritonitis [Unknown]
  - Endometriosis [Unknown]

NARRATIVE: CASE EVENT DATE: 2014
